FAERS Safety Report 9434925 (Version 1)
Quarter: 2013Q3

REPORT INFORMATION
  Report Type: Spontaneous
  Country: CA (occurrence: CA)
  Receive Date: 20130801
  Receipt Date: 20130801
  Transmission Date: 20140515
  Serious: Yes (Other)
  Sender: FDA-Public Use
  Company Number: CHPA2013CA011771

PATIENT
  Age: 69 Year
  Sex: Male

DRUGS (4)
  1. HABITROL [Suspect]
     Indication: SMOKING CESSATION THERAPY
     Dosage: 7 MG, UNK
     Route: 062
     Dates: end: 20130605
  2. HABITROL [Suspect]
     Dosage: 14 MG, UNK
     Route: 062
  3. HABITROL [Suspect]
     Dosage: 21 MG, UNK
     Route: 062
  4. HABITROL [Suspect]
     Dosage: UNK, UNK
     Route: 062

REACTIONS (3)
  - Aneurysm [Unknown]
  - Memory impairment [Not Recovered/Not Resolved]
  - Anxiety [Not Recovered/Not Resolved]
